FAERS Safety Report 15472622 (Version 1)
Quarter: 2018Q4

REPORT INFORMATION
  Report Type: Spontaneous
  Country: DE (occurrence: DE)
  Receive Date: 20181008
  Receipt Date: 20181008
  Transmission Date: 20190205
  Serious: Yes (Other)
  Sender: FDA-Public Use
  Company Number: DE-SUN PHARMACEUTICAL INDUSTRIES LTD-2018RR-186329

PATIENT
  Age: 32 Year
  Sex: Male
  Weight: 60 kg

DRUGS (3)
  1. SERTRALIN AUROBINDO [Concomitant]
     Indication: SOCIAL FEAR
     Dosage: 50MG
     Route: 048
     Dates: start: 20180101
  2. MIRTAZAPIN [Suspect]
     Active Substance: MIRTAZAPINE
     Indication: SLEEP DISORDER
     Dosage: 15MG
     Route: 048
     Dates: start: 20180101
  3. SOLEDUM KAPSELN FORTE 200 MG [Suspect]
     Active Substance: EUCALYPTOL
     Indication: BRONCHITIS
     Dosage: 200MG
     Route: 048
     Dates: start: 20180829

REACTIONS (4)
  - Drug interaction [Unknown]
  - Syncope [Recovered/Resolved]
  - Dizziness [Recovered/Resolved]
  - Cardiovascular disorder [Recovered/Resolved]

NARRATIVE: CASE EVENT DATE: 201808
